FAERS Safety Report 18653649 (Version 1)
Quarter: 2020Q4

REPORT INFORMATION
  Report Type: Spontaneous
  Country: DE (occurrence: DE)
  Receive Date: 20201223
  Receipt Date: 20201223
  Transmission Date: 20210114
  Serious: Yes (Hospitalization, Other)
  Sender: FDA-Public Use
  Company Number: DE-SA-2020SA364277

PATIENT

DRUGS (2)
  1. DOXYLAMINE SUCCINATE. [Suspect]
     Active Substance: DOXYLAMINE SUCCINATE
     Indication: ANTIALLERGIC THERAPY
     Dosage: 10 AND 200 FOLD OF A THERAPEUTIC DOSE
  2. DOXYLAMINE SUCCINATE. [Suspect]
     Active Substance: DOXYLAMINE SUCCINATE
     Indication: SUICIDAL IDEATION

REACTIONS (3)
  - Toxicity to various agents [Unknown]
  - Poisoning [Unknown]
  - Intentional overdose [Unknown]
